FAERS Safety Report 11695943 (Version 1)
Quarter: 2015Q4

REPORT INFORMATION
  Report Type: Spontaneous
  Country: DE (occurrence: DE)
  Receive Date: 20151104
  Receipt Date: 20151104
  Transmission Date: 20160304
  Serious: Yes (Other)
  Sender: FDA-Public Use
  Company Number: DE-SUN PHARMACEUTICAL INDUSTRIES LTD-2015R1-105590

PATIENT
  Age: 65 Year
  Sex: Male

DRUGS (1)
  1. QUETIAPINE [Suspect]
     Active Substance: QUETIAPINE
     Indication: MAJOR DEPRESSION
     Route: 065

REACTIONS (4)
  - Vomiting [Recovered/Resolved]
  - Drug withdrawal syndrome [Recovered/Resolved]
  - Nausea [Recovered/Resolved]
  - Drug dependence [Recovered/Resolved]
